FAERS Safety Report 18902378 (Version 2)
Quarter: 2021Q1

REPORT INFORMATION
  Report Type: Report from Study
  Country: GR (occurrence: GR)
  Receive Date: 20210216
  Receipt Date: 20210219
  Transmission Date: 20210420
  Serious: Yes (Life-Threatening, Hospitalization)
  Sender: FDA-Public Use
  Company Number: GR-JNJFOC-A-CH2019-193436

PATIENT
  Age: 39 Year
  Sex: Female
  Weight: 48 kg

DRUGS (8)
  1. UPTRAVI [Suspect]
     Active Substance: SELEXIPAG
     Indication: PULMONARY ARTERIAL HYPERTENSION
     Dosage: 400 MCG, QD
     Route: 048
     Dates: start: 20190626, end: 20190820
  2. ADCIRCA [Concomitant]
     Active Substance: TADALAFIL
     Indication: PULMONARY ARTERIAL HYPERTENSION
     Dosage: 40 MG, QD
     Route: 048
     Dates: start: 20190124
  3. AMBRISENTAN [Concomitant]
     Active Substance: AMBRISENTAN
     Indication: PULMONARY ARTERIAL HYPERTENSION
     Dosage: 10 MG, QD
     Route: 048
     Dates: start: 20150101
  4. SPIRONOLACTONE. [Concomitant]
     Active Substance: SPIRONOLACTONE
     Indication: RIGHT VENTRICULAR FAILURE
     Dosage: UNK
     Route: 048
     Dates: start: 20150101
  5. UPTRAVI [Suspect]
     Active Substance: SELEXIPAG
     Dosage: 800 MCG, QD
     Route: 048
     Dates: start: 20200421
  6. FUROSEMIDE. [Concomitant]
     Active Substance: FUROSEMIDE
     Indication: RIGHT VENTRICULAR FAILURE
     Dosage: UNK
     Route: 048
     Dates: start: 20150101
  7. UPTRAVI [Suspect]
     Active Substance: SELEXIPAG
     Dosage: 800 MCG, QD
     Route: 048
     Dates: start: 20190820, end: 20190902
  8. UPTRAVI [Suspect]
     Active Substance: SELEXIPAG
     Dosage: 1200 MCG, QD
     Route: 048
     Dates: start: 20190902, end: 20200421

REACTIONS (6)
  - Headache [Recovering/Resolving]
  - Brain abscess [Not Recovered/Not Resolved]
  - Depressed level of consciousness [Not Recovered/Not Resolved]
  - Fatigue [Recovering/Resolving]
  - Brain oedema [Not Recovered/Not Resolved]
  - Pyrexia [Not Recovered/Not Resolved]

NARRATIVE: CASE EVENT DATE: 20200415
